FAERS Safety Report 19595215 (Version 4)
Quarter: 2021Q4

REPORT INFORMATION
  Report Type: Other
  Country: CA (occurrence: CA)
  Receive Date: 20210723
  Receipt Date: 20211004
  Transmission Date: 20220303
  Serious: Yes (Other)
  Sender: FDA-Public Use
  Company Number: CA-ROCHE-2873325

PATIENT
  Sex: Female

DRUGS (4)
  1. OCREVUS [Suspect]
     Active Substance: OCRELIZUMAB
     Indication: Relapsing-remitting multiple sclerosis
     Dosage: 300 MG AT DAY 0 AND 14, THEN 600 MG EVERY 6 MONTH
     Route: 042
     Dates: start: 20191003
  2. OCREVUS [Suspect]
     Active Substance: OCRELIZUMAB
     Route: 042
  3. MODERNA COVID-19 VACCINE [Suspect]
     Active Substance: CX-024414
     Indication: Product used for unknown indication
     Route: 065
  4. CEFADROXIL [Concomitant]
     Active Substance: CEFADROXIL

REACTIONS (2)
  - Cellulitis [Recovering/Resolving]
  - Lymphadenopathy [Unknown]
